APPROVED DRUG PRODUCT: NEOMYCIN AND POLYMYXIN B SULFATES AND BACITRACIN ZINC
Active Ingredient: BACITRACIN ZINC; NEOMYCIN SULFATE; POLYMYXIN B SULFATE
Strength: 400 UNITS/GM;EQ 3.5MG BASE/GM;10,000 UNITS/GM
Dosage Form/Route: OINTMENT;OPHTHALMIC
Application: A065088 | Product #001
Applicant: SCIEGEN PHARMACEUTICALS INC
Approved: Feb 6, 2004 | RLD: No | RS: No | Type: DISCN